FAERS Safety Report 11999263 (Version 1)
Quarter: 2016Q1

REPORT INFORMATION
  Report Type: Spontaneous
  Country: US (occurrence: None)
  Receive Date: 20160203
  Receipt Date: 20160203
  Transmission Date: 20160526
  Serious: Yes (Life-Threatening, Disabling)
  Sender: FDA-Public Use
  Company Number: None

PATIENT
  Age: 45 Year
  Sex: Female
  Weight: 76.2 kg

DRUGS (13)
  1. MAGNESIUM OIL [Concomitant]
  2. MAGNESIUM BATHS [Concomitant]
  3. ALPRAZOLAM. [Concomitant]
     Active Substance: ALPRAZOLAM
  4. MS CONTIN [Concomitant]
     Active Substance: MORPHINE SULFATE
  5. SYNTHROID [Concomitant]
     Active Substance: LEVOTHYROXINE SODIUM
  6. VITAMIN E [Concomitant]
     Active Substance: .ALPHA.-TOCOPHEROL
  7. MULTIVITAMIN [Concomitant]
     Active Substance: VITAMINS
  8. EPSOM SALT [Concomitant]
     Active Substance: MAGNESIUM SULFATE
  9. VITAMIN D [Concomitant]
     Active Substance: CHOLECALCIFEROL
  10. OXYCODONE [Concomitant]
     Active Substance: OXYCODONE
  11. GLUTATHIONE [Concomitant]
     Active Substance: GLUTATHIONE
  12. LEVAQUIN [Suspect]
     Active Substance: LEVOFLOXACIN
     Indication: SINUSITIS
     Dosage: 10 PILLS ONCE DAILY TAKEN MY MOUTH
     Route: 048
  13. VITAMIN C [Concomitant]
     Active Substance: ASCORBIC ACID

REACTIONS (21)
  - Tendon rupture [None]
  - Vaginal infection [None]
  - Peripheral sensory neuropathy [None]
  - Mitral valve incompetence [None]
  - Tricuspid valve incompetence [None]
  - Hypertension [None]
  - Blood pressure fluctuation [None]
  - Dry eye [None]
  - Rash [None]
  - Gastrointestinal disorder [None]
  - Anxiety [None]
  - Dizziness [None]
  - Nightmare [None]
  - Headache [None]
  - Toxicity to various agents [None]
  - Gait disturbance [None]
  - Depersonalisation/derealisation disorder [None]
  - Insomnia [None]
  - Tremor [None]
  - Fatigue [None]
  - Pain [None]

NARRATIVE: CASE EVENT DATE: 20070319
